FAERS Safety Report 8561560-2 (Version None)
Quarter: 2012Q3

REPORT INFORMATION
  Report Type: 
  Country: None (occurrence: None)
  Receive Date: 20120802
  Receipt Date: 20120801
  Transmission Date: 20120928
  Serious: Yes (Other)
  Sender: FDA-Public Use
  Company Number: PHHY2012GB055514

PATIENT
  Age: 65 Year
  Sex: Male

DRUGS (3)
  1. FENTANYL CITRATE [Suspect]
     Indication: SPINAL PAIN
     Dosage: 12.5 UG, UNK
     Route: 062
     Dates: start: 20120607, end: 20120607
  2. GABAPENTIN [Suspect]
     Indication: BACK PAIN
     Dosage: 900 MG, QD
     Route: 048
  3. TRAMADOL HCL [Suspect]
     Indication: BACK PAIN
     Dosage: 300 MG, QD
     Route: 048

REACTIONS (6)
  - TOXICITY TO VARIOUS AGENTS [None]
  - INSOMNIA [None]
  - SWEAT GLAND DISORDER [None]
  - DYSPNOEA [None]
  - FEELING ABNORMAL [None]
  - CHEST PAIN [None]
